FAERS Safety Report 7377233-8 (Version None)
Quarter: 2011Q1

REPORT INFORMATION
  Report Type: 
  Country: None (occurrence: None)
  Receive Date: 20110328
  Receipt Date: 20100108
  Transmission Date: 20110831
  Serious: No
  Sender: FDA-Public Use
  Company Number: 2010BI003630

PATIENT
  Sex: Female

DRUGS (1)
  1. TYSABRI [Suspect]
     Indication: MULTIPLE SCLEROSIS
     Route: 042
     Dates: start: 20081204, end: 20100806

REACTIONS (6)
  - BALANCE DISORDER [None]
  - FATIGUE [None]
  - STRESS [None]
  - MYALGIA [None]
  - MEMORY IMPAIRMENT [None]
  - APHASIA [None]
